FAERS Safety Report 4541150-9 (Version None)
Quarter: 2004Q4

REPORT INFORMATION
  Report Type: 
  Country: None (occurrence: None)
  Receive Date: 20041227
  Receipt Date: 20041206
  Transmission Date: 20050328
  Serious: Yes (Hospitalization)
  Sender: FDA-Public Use
  Company Number: 9414

PATIENT
  Age: 69 Year
  Sex: Male

DRUGS (4)
  1. METHOTREXATE [Suspect]
     Indication: RHEUMATOID ARTHRITIS
     Dosage: 15 MG
     Route: 030
     Dates: start: 19980101, end: 20041104
  2. INFLIXIMAB [Suspect]
     Indication: RHEUMATOID ARTHRITIS
     Dosage: 5 MG/KG
     Route: 042
     Dates: start: 20031014, end: 20041015
  3. DEFLAZACORT [Concomitant]
  4. HYDROXYCHLOROQUINE PHOSPHATE [Concomitant]

REACTIONS (2)
  - GASTROINTESTINAL CARCINOMA [None]
  - INTESTINAL OBSTRUCTION [None]
